FAERS Safety Report 17725777 (Version 1)
Quarter: 2020Q2

REPORT INFORMATION
  Report Type: Spontaneous
  Country: US (occurrence: US)
  Receive Date: 20200429
  Receipt Date: 20200429
  Transmission Date: 20200714
  Serious: No
  Sender: FDA-Public Use
  Company Number: US-TEVA-2020-US-1228337

PATIENT
  Age: 75 Year
  Sex: Female

DRUGS (2)
  1. ANAGRELIDE HYDROCHLORIDE. [Suspect]
     Active Substance: ANAGRELIDE HYDROCHLORIDE
     Route: 065
  2. ANAGRELIDE HYDROCHLORIDE. [Suspect]
     Active Substance: ANAGRELIDE HYDROCHLORIDE
     Route: 065

REACTIONS (6)
  - Product dose omission [Unknown]
  - Platelet disorder [Unknown]
  - White blood cell count abnormal [Unknown]
  - Incorrect dose administered [Unknown]
  - Red blood cell count abnormal [Unknown]
  - Product availability issue [Unknown]
